FAERS Safety Report 5930176-6 (Version None)
Quarter: 2008Q4

REPORT INFORMATION
  Report Type: 
  Country: None (occurrence: None)
  Receive Date: 20081024
  Receipt Date: 20081007
  Transmission Date: 20090506
  Serious: Yes (Hospitalization, Other)
  Sender: FDA-Public Use
  Company Number: DE-ABBOTT-08P-062-0479057-00

PATIENT
  Sex: Female
  Weight: 90 kg

DRUGS (4)
  1. HUMIRA [Suspect]
     Indication: RHEUMATOID ARTHRITIS
     Route: 058
     Dates: start: 20050401
  2. METHOTREXATE [Concomitant]
     Indication: RHEUMATOID ARTHRITIS
  3. CORTISONE ACETATE [Concomitant]
     Indication: RHEUMATOID ARTHRITIS
  4. MORPHINE SULFATE INJ [Concomitant]
     Indication: RHEUMATOID ARTHRITIS

REACTIONS (1)
  - UPPER LIMB FRACTURE [None]
